FAERS Safety Report 8810115 (Version 1)
Quarter: 2012Q4

REPORT INFORMATION
  Report Type: Report from Study
  Country: US (occurrence: US)
  Receive Date: 20120926
  Receipt Date: 20120926
  Transmission Date: 20130627
  Serious: Yes (Death)
  Sender: FDA-Public Use
  Company Number: US-ROCHE-1137452

PATIENT
  Sex: Female

DRUGS (1)
  1. XELODA [Suspect]
     Indication: COLORECTAL CANCER METASTATIC
     Dosage: Unknown
     Route: 048
     Dates: start: 20120325

REACTIONS (1)
  - Death [Fatal]
